FAERS Safety Report 20095264 (Version 3)
Quarter: 2024Q3

REPORT INFORMATION
  Report Type: Report from Study
  Country: KR (occurrence: KR)
  Receive Date: 20211122
  Receipt Date: 20240924
  Transmission Date: 20241016
  Serious: Yes (Life-Threatening, Other)
  Sender: GLAXOSMITHKLINE
  Company Number: KR-TAKEDA-2021TJP119059

PATIENT

DRUGS (12)
  1. NIRAPARIB [Suspect]
     Active Substance: NIRAPARIB
     Indication: Product used for unknown indication
     Dosage: 200 MG, QD
     Route: 048
     Dates: start: 20211007, end: 20211020
  2. NIRAPARIB [Suspect]
     Active Substance: NIRAPARIB
     Dosage: 100 MG, QD
     Route: 048
     Dates: start: 20211111, end: 20211117
  3. NIRAPARIB [Suspect]
     Active Substance: NIRAPARIB
     Dosage: 100 MG, QD
     Route: 048
     Dates: start: 20211209, end: 20230322
  4. D3 BASE [Concomitant]
     Indication: Prophylaxis
     Dosage: 2000 IU, QD
     Route: 048
     Dates: start: 20210508
  5. RAMOSETRON HYDROCHLORIDE [Concomitant]
     Active Substance: RAMOSETRON HYDROCHLORIDE
     Indication: Prophylaxis
     Dosage: 0.1 MG, QD
     Route: 048
     Dates: start: 20211007, end: 20211020
  6. FILGRASTIM [Concomitant]
     Active Substance: FILGRASTIM
     Indication: Neutropenia
     Dosage: 150 ?G, QD
     Route: 058
     Dates: start: 20211026, end: 20211026
  7. FILGRASTIM [Concomitant]
     Active Substance: FILGRASTIM
     Dosage: 300 ?G, QD
     Route: 058
     Dates: start: 20211104, end: 20211104
  8. FILGRASTIM [Concomitant]
     Active Substance: FILGRASTIM
     Dosage: 300 ?G, QD
     Route: 058
     Dates: start: 20211124, end: 20211124
  9. FILGRASTIM [Concomitant]
     Active Substance: FILGRASTIM
     Dosage: 300 ?G, QD
     Route: 058
     Dates: start: 20211216, end: 20211216
  10. LEVOFLOXACIN [Concomitant]
     Active Substance: LEVOFLOXACIN
     Indication: Prophylaxis
     Dosage: 500 MG, QD
     Route: 048
     Dates: start: 20211026, end: 20211030
  11. PENIRAMIN [Concomitant]
     Indication: Prophylaxis
     Dosage: UNK UNK, QD
     Route: 042
     Dates: start: 20211026, end: 20211026
  12. DEXAMETHASONE [Concomitant]
     Active Substance: DEXAMETHASONE
     Indication: Prophylaxis
     Dosage: UNK UNK, QD
     Route: 042
     Dates: start: 20211026, end: 20211026

REACTIONS (1)
  - Neutrophil count decreased [Recovered/Resolved]

NARRATIVE: CASE EVENT DATE: 20211104
